FAERS Safety Report 7451004-6 (Version None)
Quarter: 2011Q2

REPORT INFORMATION
  Report Type: 
  Country: None (occurrence: None)
  Receive Date: 20110422
  Receipt Date: 20110412
  Transmission Date: 20111010
  Serious: Yes (Hospitalization, Other)
  Sender: FDA-Public Use
  Company Number: 2011AP000710

PATIENT
  Age: 82 Year
  Sex: Female

DRUGS (2)
  1. AMIODARONE HYDROCHLORIDE [Suspect]
     Indication: ATRIAL FIBRILLATION
     Dosage: 200 MG QD;
  2. AMITRIPTYLINE HCL [Suspect]
     Indication: INSOMNIA
     Dosage: 50 MG, QD;

REACTIONS (9)
  - SPEECH DISORDER [None]
  - DRY MOUTH [None]
  - DEHYDRATION [None]
  - DYSARTHRIA [None]
  - EXTRAPYRAMIDAL DISORDER [None]
  - DYSKINESIA [None]
  - TOXICITY TO VARIOUS AGENTS [None]
  - DRUG INTERACTION [None]
  - TREMOR [None]
